FAERS Safety Report 22185929 (Version 1)
Quarter: 2023Q2

REPORT INFORMATION
  Report Type: Spontaneous
  Country: US (occurrence: None)
  Receive Date: 20230406
  Receipt Date: 20230406
  Transmission Date: 20230721
  Serious: Yes (Hospitalization)
  Sender: FDA-Public Use
  Company Number: None

PATIENT
  Age: 63 Year
  Sex: Female

DRUGS (1)
  1. HUMIRA [Suspect]
     Active Substance: ADALIMUMAB
     Indication: Crohn^s disease
     Dosage: OTHER FREQUENCY : N/A;?
     Route: 058
     Dates: start: 201712

REACTIONS (3)
  - Urinary tract infection [None]
  - Seizure [None]
  - Somnolence [None]

NARRATIVE: CASE EVENT DATE: 20230404
